FAERS Safety Report 6700119-6 (Version None)
Quarter: 2010Q2

REPORT INFORMATION
  Report Type: 
  Country: None (occurrence: None)
  Receive Date: 20100428
  Receipt Date: 20100419
  Transmission Date: 20101027
  Serious: Yes (Hospitalization)
  Sender: FDA-Public Use
  Company Number: FR-ASTRAZENECA-2010SE18257

PATIENT
  Age: 25 Year
  Sex: Female

DRUGS (11)
  1. NEXIUM [Suspect]
     Route: 048
     Dates: start: 20100201, end: 20100327
  2. ALLOPURINOL [Suspect]
     Route: 048
     Dates: start: 20100201, end: 20100327
  3. ENDOXAN [Suspect]
     Indication: NON-HODGKIN'S LYMPHOMA
     Route: 042
     Dates: start: 20100317, end: 20100317
  4. CYTARABINE (UNKNOWN LABORATORY) [Suspect]
     Indication: NON-HODGKIN'S LYMPHOMA
     Route: 037
     Dates: start: 20100317, end: 20100317
  5. DOXORUBICIN (UNKNOWN LABORATORY) [Suspect]
     Indication: NON-HODGKIN'S LYMPHOMA
     Route: 042
     Dates: start: 20100317, end: 20100317
  6. DEPO-MEDROL [Suspect]
     Indication: NON-HODGKIN'S LYMPHOMA
     Route: 037
     Dates: start: 20100317, end: 20100317
  7. METHOTREXATE (UNKNOWN LABORATORY) [Suspect]
     Indication: NON-HODGKIN'S LYMPHOMA
     Route: 037
     Dates: start: 20100317, end: 20100317
  8. PRIMPERAN [Suspect]
     Route: 048
     Dates: start: 20100201, end: 20100327
  9. CORTANCYL [Suspect]
     Route: 048
     Dates: start: 20100201, end: 20100301
  10. MABTHERA [Suspect]
     Indication: NON-HODGKIN'S LYMPHOMA
     Route: 042
     Dates: start: 20100317, end: 20100317
  11. VINCRISTINE (UNKNOWN LABORATORY) [Suspect]
     Indication: NON-HODGKIN'S LYMPHOMA
     Route: 042
     Dates: start: 20100317, end: 20100317

REACTIONS (2)
  - CEREBRAL VENOUS THROMBOSIS [None]
  - HEADACHE [None]
